FAERS Safety Report 13615661 (Version 2)
Quarter: 2017Q3

REPORT INFORMATION
  Report Type: Spontaneous
  Country: JP (occurrence: JP)
  Receive Date: 20170606
  Receipt Date: 20170711
  Transmission Date: 20171127
  Serious: Yes (Disabling, Other)
  Sender: FDA-Public Use
  Company Number: JP-ROCHE-1944064

PATIENT
  Age: 78 Year
  Sex: Female

DRUGS (3)
  1. LUCENTIS [Suspect]
     Active Substance: RANIBIZUMAB
     Route: 031
     Dates: start: 20140513, end: 20140513
  2. LUCENTIS [Suspect]
     Active Substance: RANIBIZUMAB
     Indication: DIABETIC RETINAL OEDEMA
     Dosage: UNK
     Route: 031
     Dates: start: 20140401
  3. EYLEA [Suspect]
     Active Substance: AFLIBERCEPT
     Indication: DIABETIC RETINAL OEDEMA
     Route: 031
     Dates: end: 20151217

REACTIONS (4)
  - Vitreous haemorrhage [Unknown]
  - Retinal vein occlusion [Not Recovered/Not Resolved]
  - Diabetic retinal oedema [Not Recovered/Not Resolved]
  - Retinal ischaemia [Not Recovered/Not Resolved]

NARRATIVE: CASE EVENT DATE: 20140716
